FAERS Safety Report 9734929 (Version 1)
Quarter: 2013Q4

REPORT INFORMATION
  Report Type: Spontaneous
  Country: US (occurrence: US)
  Receive Date: 20131206
  Receipt Date: 20131206
  Transmission Date: 20140711
  Serious: No
  Sender: FDA-Public Use
  Company Number: US-PFIZER INC-2013348502

PATIENT
  Age: 54 Year
  Sex: Male
  Weight: 109 kg

DRUGS (2)
  1. GABAPENTIN [Suspect]
     Dosage: 600 MG, 2X/DAY
  2. METHADONE [Concomitant]
     Indication: BACK PAIN
     Dosage: 5 MG, 3X/DAY

REACTIONS (2)
  - Drug ineffective [Unknown]
  - Feeling abnormal [Unknown]
